FAERS Safety Report 14238316 (Version 1)
Quarter: 2017Q4

REPORT INFORMATION
  Report Type: Spontaneous
  Country: US (occurrence: None)
  Receive Date: 20171128
  Receipt Date: 20171128
  Transmission Date: 20180321
  Serious: Yes (Hospitalization)
  Sender: FDA-Public Use
  Company Number: None

PATIENT
  Age: 75 Year
  Sex: Male

DRUGS (1)
  1. NINLARO [Suspect]
     Active Substance: IXAZOMIB CITRATE
     Indication: PLASMA CELL MYELOMA
     Dosage: 2.3MG DAY 1,8,15/28 DAYS MOUTH
     Route: 048
     Dates: start: 20161116

REACTIONS (2)
  - Dehydration [None]
  - Disorientation [None]

NARRATIVE: CASE EVENT DATE: 20171108
